FAERS Safety Report 24869964 (Version 3)
Quarter: 2025Q1

REPORT INFORMATION
  Report Type: Spontaneous
  Country: NZ (occurrence: NZ)
  Receive Date: 20250121
  Receipt Date: 20250304
  Transmission Date: 20250408
  Serious: Yes (Death, Other)
  Sender: MYLAN
  Company Number: NZ-MYLANLABS-2025M1005768

PATIENT
  Sex: Female

DRUGS (9)
  1. CLOZARIL [Suspect]
     Active Substance: CLOZAPINE
     Indication: Schizophrenia
     Dosage: UNK, BID (100MG IN MANE, 150MG AT NOCTE)
     Dates: start: 20030408, end: 20250112
  2. ATORVASTATIN [Concomitant]
     Active Substance: ATORVASTATIN
  3. CELECOXIB [Concomitant]
     Active Substance: CELECOXIB
  4. METFORMIN HYDROCHLORIDE\VILDAGLIPTIN [Concomitant]
     Active Substance: METFORMIN HYDROCHLORIDE\VILDAGLIPTIN
  5. JARDIANCE [Concomitant]
     Active Substance: EMPAGLIFLOZIN
  6. ACETAMINOPHEN [Concomitant]
     Active Substance: ACETAMINOPHEN
  7. ASPIRIN [Concomitant]
     Active Substance: ASPIRIN
  8. CANDESARTAN [Concomitant]
     Active Substance: CANDESARTAN
  9. TRAMADOL HYDROCHLORIDE [Concomitant]
     Active Substance: TRAMADOL HYDROCHLORIDE

REACTIONS (2)
  - Myocardial infarction [Fatal]
  - Neoplasm malignant [Unknown]
